FAERS Safety Report 13556672 (Version 1)
Quarter: 2017Q2

REPORT INFORMATION
  Report Type: Spontaneous
  Country: None (occurrence: US)
  Receive Date: 20170517
  Receipt Date: 20170517
  Transmission Date: 20170830
  Serious: No
  Sender: FDA-Public Use
  Company Number: None

PATIENT
  Age: 59 Year
  Sex: Female

DRUGS (1)
  1. AMIKACIN SULFATE 500MG FRESENIUS KABI [Suspect]
     Active Substance: AMIKACIN SULFATE
     Indication: BRONCHIECTASIS
     Dosage: 850MG Q24H IV
     Route: 042
     Dates: start: 20170429, end: 20170502

REACTIONS (3)
  - Nausea [None]
  - Dizziness postural [None]
  - Ear discomfort [None]

NARRATIVE: CASE EVENT DATE: 20170502
